FAERS Safety Report 21622272 (Version 1)
Quarter: 2022Q4

REPORT INFORMATION
  Report Type: Spontaneous
  Country: US (occurrence: US)
  Receive Date: 20221121
  Receipt Date: 20221121
  Transmission Date: 20230113
  Serious: No
  Sender: FDA-Public Use
  Company Number: US-SANOFI-01359804

PATIENT
  Sex: Male

DRUGS (2)
  1. JEVTANA [Suspect]
     Active Substance: CABAZITAXEL
     Dosage: UNK
  2. DOCETAXEL [Suspect]
     Active Substance: DOCETAXEL
     Dosage: UNK

REACTIONS (5)
  - Headache [Recovering/Resolving]
  - Dizziness [Unknown]
  - Feeling abnormal [Unknown]
  - Somnolence [Unknown]
  - Fatigue [Unknown]
